FAERS Safety Report 16764099 (Version 4)
Quarter: 2019Q4

REPORT INFORMATION
  Report Type: Report from Study
  Country: JP (occurrence: JP)
  Receive Date: 20190902
  Receipt Date: 20191002
  Transmission Date: 20200122
  Serious: Yes (Hospitalization)
  Sender: FDA-Public Use
  Company Number: JP-DSJP-DSJ-2017-153760AA

PATIENT
  Age: 82 Year
  Sex: Male
  Weight: 50 kg

DRUGS (19)
  1. TAMSULOSIN [Concomitant]
     Active Substance: TAMSULOSIN
     Indication: PRODUCT USED FOR UNKNOWN INDICATION
     Dosage: 0.2 MG, QD, AFTER BREAKFAST
     Route: 048
  2. LOSARTAN POTASSIUM. [Concomitant]
     Active Substance: LOSARTAN POTASSIUM
     Indication: PRODUCT USED FOR UNKNOWN INDICATION
     Dosage: 25 MG, QD, AFTER BREAKFAST
     Route: 048
     Dates: start: 20170809
  3. TORASEMIDE [Concomitant]
     Active Substance: TORSEMIDE
     Indication: PRODUCT USED FOR UNKNOWN INDICATION
     Dosage: 8 MG, QD,AFTER BREAKFAST
     Route: 048
  4. EDOXABAN OD [Suspect]
     Active Substance: EDOXABAN TOSYLATE
     Dosage: 30 MG, QD
     Route: 048
     Dates: start: 20190524
  5. ARTIST TABLETS 10MG [Suspect]
     Active Substance: CARVEDILOL
     Dosage: 5 MG, QD, AFTER BREAKFAST
     Route: 048
     Dates: start: 20170330, end: 20170720
  6. EDOXABAN [Suspect]
     Active Substance: EDOXABAN TOSYLATE
     Indication: ATRIAL FIBRILLATION
     Dosage: 30 MG, QD, AFTER BREAKFAST
     Route: 048
     Dates: start: 20170808, end: 20180619
  7. LUPRAC [Concomitant]
     Active Substance: TORSEMIDE
     Indication: PRODUCT USED FOR UNKNOWN INDICATION
     Dosage: 8 MG/DAY
     Route: 048
     Dates: start: 20170817
  8. TAMSULOSIN [Concomitant]
     Active Substance: TAMSULOSIN
     Indication: PRODUCT USED FOR UNKNOWN INDICATION
     Dosage: 0.2 MG, QD,AFTER BREAKFAST
     Route: 065
  9. EDOXABAN OD [Suspect]
     Active Substance: EDOXABAN TOSYLATE
     Indication: ATRIAL FIBRILLATION
     Dosage: 30 MG, QD
     Route: 048
     Dates: start: 20180620, end: 20190508
  10. ARTIST TABLETS 10MG [Suspect]
     Active Substance: CARVEDILOL
     Indication: PRODUCT USED FOR UNKNOWN INDICATION
     Dosage: UNK
     Route: 048
     Dates: start: 20071030
  11. EDOXABAN OD [Suspect]
     Active Substance: EDOXABAN TOSYLATE
     Dosage: 30 MG, QD
     Route: 048
     Dates: start: 20190510, end: 20190521
  12. CEFDINIR. [Concomitant]
     Active Substance: CEFDINIR
     Indication: PRODUCT USED FOR UNKNOWN INDICATION
     Dosage: 100 MG, TID,AFTER EVRY MEAL
     Route: 048
  13. ARTIST TABLETS 10MG [Suspect]
     Active Substance: CARVEDILOL
     Dosage: 2.5 MG, QD
     Route: 048
     Dates: start: 20080807
  14. ARTIST TABLETS 10MG [Suspect]
     Active Substance: CARVEDILOL
     Dosage: 10 MG, QD, AFTER BREAKFAST
     Route: 048
     Dates: start: 20110623, end: 20170329
  15. DOPAMINE HYDROCHLORIDE. [Suspect]
     Active Substance: DOPAMINE HYDROCHLORIDE
     Indication: PRODUCT USED FOR UNKNOWN INDICATION
     Dosage: 200 MG, QD
     Route: 041
     Dates: start: 20190512, end: 20190514
  16. AZOSEMIDE [Concomitant]
     Active Substance: AZOSEMIDE
     Indication: PRODUCT USED FOR UNKNOWN INDICATION
     Dosage: 60 MG, QD, AFTER BREAKFAST
     Route: 048
  17. SELARA [Concomitant]
     Active Substance: EPLERENONE
     Indication: PRODUCT USED FOR UNKNOWN INDICATION
     Dosage: 25 MG, QD, AFTER BREAKFAST
     Route: 048
  18. MIYA-BM [Concomitant]
     Active Substance: CLOSTRIDIUM BUTYRICUM SPORES STRAIN M-55
     Indication: PRODUCT USED FOR UNKNOWN INDICATION
     Dosage: 1 DF, TID,AFTER EVRY MEAL
     Route: 048
  19. PRAVASTATIN. [Concomitant]
     Active Substance: PRAVASTATIN
     Indication: PRODUCT USED FOR UNKNOWN INDICATION
     Dosage: 10 MG, QD, AFTER BREAKFAST
     Route: 048

REACTIONS (17)
  - Medical device site necrosis [Recovered/Resolved]
  - Seborrhoeic dermatitis [Recovering/Resolving]
  - Conjunctivitis allergic [Recovering/Resolving]
  - Allergy to metals [Recovering/Resolving]
  - Cardiac tamponade [Recovered/Resolved]
  - Faeces hard [Recovering/Resolving]
  - Cardiac failure [Recovering/Resolving]
  - Restlessness [Recovered/Resolved]
  - Delirium [Recovered/Resolved]
  - Ulcer [Recovering/Resolving]
  - Periodontitis [Recovering/Resolving]
  - Pneumonia [Recovered/Resolved]
  - Mouth haemorrhage [Recovering/Resolving]
  - Skin ulcer [Recovered/Resolved]
  - Medical device site necrosis [Recovered/Resolved]
  - Hyperkeratosis [Recovering/Resolving]
  - Cardiac failure congestive [Recovering/Resolving]

NARRATIVE: CASE EVENT DATE: 20170727
